FAERS Safety Report 6991315-1 (Version None)
Quarter: 2010Q3

REPORT INFORMATION
  Report Type: 
  Country: None (occurrence: None)
  Receive Date: 20100916
  Receipt Date: 20090701
  Transmission Date: 20110219
  Serious: No
  Sender: FDA-Public Use
  Company Number: US-WYE-H10001109

PATIENT
  Sex: Male

DRUGS (1)
  1. TORISEL [Suspect]
     Dosage: FROM AN UNSPECIFIED DATE, TEMPORARILY ON HOLD AS OF 01-JUL-2009; DOSE 25 MG WEEKLY
     Route: 042

REACTIONS (3)
  - ERYTHEMA [None]
  - NAIL DISORDER [None]
  - SWELLING [None]
